FAERS Safety Report 5847311-0 (Version None)
Quarter: 2008Q3

REPORT INFORMATION
  Report Type: 
  Country: None (occurrence: None)
  Receive Date: 20080815
  Receipt Date: 20080806
  Transmission Date: 20090109
  Serious: Yes (Other)
  Sender: FDA-Public Use
  Company Number: GB-GILEAD-2008-0017646

PATIENT
  Age: 61 Year
  Sex: Male

DRUGS (4)
  1. VIREAD [Suspect]
  2. RITONAVIR [Concomitant]
  3. FOSAMPRENAVIR [Concomitant]
  4. SERETIDE [Concomitant]

REACTIONS (1)
  - CARDIAC FAILURE [None]
